FAERS Safety Report 5904279-6 (Version None)
Quarter: 2008Q4

REPORT INFORMATION
  Report Type: 
  Country: None (occurrence: None)
  Receive Date: 20081001
  Receipt Date: 20080602
  Transmission Date: 20090506
  Serious: No
  Sender: FDA-Public Use
  Company Number: US-BRISTOL-MYERS SQUIBB COMPANY-14100291

PATIENT
  Age: 70 Year
  Sex: Female

DRUGS (2)
  1. DASATINIB [Suspect]
     Indication: MALIGNANT MELANOMA
     Dosage: FREQUENCY: X8 DAYS;70MG BID ON DAYS2-19 OF EACH CYCLE.
     Dates: start: 20080220
  2. DACARBAZINE [Suspect]
     Indication: MALIGNANT MELANOMA
     Dosage: FREQUENCY: X8 DAYS
     Dates: start: 20080219

REACTIONS (1)
  - RESTLESSNESS [None]
